FAERS Safety Report 8717322 (Version 2)
Quarter: 2013Q4

REPORT INFORMATION
  Report Type: Spontaneous
  Country: US (occurrence: US)
  Receive Date: 20120810
  Receipt Date: 20131105
  Transmission Date: 20140711
  Serious: Yes (Hospitalization)
  Sender: FDA-Public Use
  Company Number: US-009507513-1207USA012059

PATIENT
  Sex: Female

DRUGS (6)
  1. VICTRELIS [Suspect]
     Dosage: 200 MG, UNK
     Route: 048
  2. COPEGUS [Suspect]
  3. PEGASYS [Suspect]
     Route: 058
  4. ORELOX [Concomitant]
  5. DETURGYLONE [Concomitant]
  6. BRONCHOKOD [Concomitant]

REACTIONS (2)
  - Dyspnoea exertional [Unknown]
  - Oedema peripheral [Unknown]
